FAERS Safety Report 8174366-3 (Version None)
Quarter: 2012Q1

REPORT INFORMATION
  Report Type: 
  Country: None (occurrence: None)
  Receive Date: 20120227
  Receipt Date: 20120213
  Transmission Date: 20120608
  Serious: Yes (Other)
  Sender: FDA-Public Use
  Company Number: 1193642

PATIENT
  Age: 66 Year
  Sex: Female

DRUGS (9)
  1. LASIX [Concomitant]
  2. DEPO-MEDROL [Suspect]
     Indication: NECK PAIN
     Dosage: ONCE, INJECTION
     Dates: start: 20111221, end: 20111221
  3. CARBOCAINE [Suspect]
     Indication: NECK PAIN
     Dosage: ONCE, INJECTION
     Dates: start: 20111221, end: 20111221
  4. CARBOCAINE [Suspect]
     Indication: BACK PAIN
     Dosage: ONCE, INJECTION
     Dates: start: 20111221, end: 20111221
  5. VALIUM [Concomitant]
  6. ZYRTEC [Concomitant]
  7. BUPIVACAINE HCL [Suspect]
     Indication: NECK PAIN
     Dosage: ONCE, INJECTION
     Dates: start: 20111221, end: 20111221
  8. BUPIVACAINE HCL [Suspect]
     Indication: BACK PAIN
     Dosage: ONCE, INJECTION
     Dates: start: 20111221, end: 20111221
  9. ATIVAN [Concomitant]

REACTIONS (11)
  - PERIPHERAL NERVE LESION [None]
  - ANXIETY [None]
  - PANIC ATTACK [None]
  - NECK PAIN [None]
  - NAUSEA [None]
  - FALL [None]
  - INTERVERTEBRAL DISC DISORDER [None]
  - DIZZINESS [None]
  - TREMOR [None]
  - BLOOD PRESSURE INCREASED [None]
  - APHAGIA [None]
